FAERS Safety Report 20637543 (Version 1)
Quarter: 2022Q1

REPORT INFORMATION
  Report Type: Spontaneous
  Country: DK (occurrence: DK)
  Receive Date: 20220325
  Receipt Date: 20220325
  Transmission Date: 20220423
  Serious: Yes (Other)
  Sender: FDA-Public Use
  Company Number: None

PATIENT
  Age: 35 Year
  Sex: Female
  Weight: 110.2 kg

DRUGS (2)
  1. OLANZAPINE [Suspect]
     Active Substance: OLANZAPINE
     Indication: Schizophrenia
     Dosage: DOSAGE: STEPWISE INCREASING 10MG TO 35MG A DAY. REDUCED TO 20MG 20MAY2021. STRENGTH: 10/15/20MG,ADDI
     Route: 048
     Dates: start: 20210430
  2. ABILIFY [Suspect]
     Active Substance: ARIPIPRAZOLE
     Indication: Schizophrenia
     Dosage: 10 MG, FREQUENCY TIME - 1 DAY
     Route: 048
     Dates: start: 202105, end: 20210628

REACTIONS (4)
  - Galactorrhoea [Unknown]
  - Hyperprolactinaemia [Recovered/Resolved]
  - Menstrual disorder [Unknown]
  - Breast tenderness [Unknown]

NARRATIVE: CASE EVENT DATE: 20210501
